FAERS Safety Report 8601137 (Version 2)
Quarter: 2012Q4

REPORT INFORMATION
  Report Type: 
  Country: IT (occurrence: IT)
  Receive Date: 20120606
  Receipt Date: 20120927
  Transmission Date: 20130627
  Serious: Yes (Hospitalization)
  Sender: FDA-Public Use
  Company Number: IT-ELI_LILLY_AND_COMPANY-IT201205009225

PATIENT
  Age: 45 Year
  Sex: Female

DRUGS (3)
  1. ZYPREXA [Suspect]
     Indication: SCHIZOPHRENIA
     Dosage: 1.5 DF, qd
     Route: 048
     Dates: start: 20110921, end: 20120413
  2. DELORAZEPAM [Concomitant]
     Dosage: 10 drops, unknown
     Route: 048
     Dates: start: 20110921, end: 20120413
  3. SEROPRAM [Concomitant]
     Dosage: 1.5 DF, unknown
     Route: 048
     Dates: start: 20110921, end: 20120413

REACTIONS (2)
  - Venous insufficiency [Recovered/Resolved]
  - Oedema peripheral [Recovered/Resolved]
